FAERS Safety Report 8600513-2 (Version None)
Quarter: 2012Q3

REPORT INFORMATION
  Report Type: 
  Country: None (occurrence: None)
  Receive Date: 20120808
  Receipt Date: 20120808
  Transmission Date: 20120928
  Serious: Yes (Hospitalization)
  Sender: FDA-Public Use
  Company Number: None

PATIENT
  Age: 73 Year
  Sex: Male
  Weight: 96.6162 kg

DRUGS (2)
  1. AMLODIPINE [Suspect]
  2. BENAZEPRIL HYDROCHLORIDE [Suspect]

REACTIONS (1)
  - BLADDER CANCER [None]
